FAERS Safety Report 5376616-5 (Version None)
Quarter: 2007Q2

REPORT INFORMATION
  Report Type: 
  Country: None (occurrence: None)
  Receive Date: 20070628
  Receipt Date: 20070622
  Transmission Date: 20071010
  Serious: Yes (Hospitalization)
  Sender: FDA-Public Use
  Company Number: 2007-02998

PATIENT
  Age: 40 Year
  Sex: Female
  Weight: 52 kg

DRUGS (4)
  1. VECURONIUM BROMIDE [Suspect]
     Indication: GENERAL ANAESTHESIA
     Dosage: 8 MG
  2. FENTANYL CITRATE [Suspect]
     Indication: GENERAL ANAESTHESIA
     Dosage: 0.15 MG, INTRAVENOUS
     Route: 042
  3. PROPOFOL [Suspect]
  4. ROPIVACAINE(ROPIVACAINE) [Suspect]

REACTIONS (2)
  - CARDIAC ARREST [None]
  - SICK SINUS SYNDROME [None]
